FAERS Safety Report 11864518 (Version 2)
Quarter: 2016Q1

REPORT INFORMATION
  Report Type: Report from Study
  Country: US (occurrence: US)
  Receive Date: 20151223
  Receipt Date: 20160122
  Transmission Date: 20160526
  Serious: Yes (Hospitalization)
  Sender: FDA-Public Use
  Company Number: US-BAYER-2015-277876

PATIENT
  Age: 39 Year
  Sex: Female

DRUGS (2)
  1. STIVARGA [Suspect]
     Active Substance: REGORAFENIB
     Indication: GASTRIC CANCER
     Dosage: DAILY DOSE 160 MG
     Route: 048
     Dates: start: 20150515
  2. STIVARGA [Suspect]
     Active Substance: REGORAFENIB
     Indication: GASTRIC CANCER
     Dosage: 160 MG (4 TABLETS), QD
     Route: 048
     Dates: start: 20150730, end: 20160110

REACTIONS (2)
  - Surgery [None]
  - Headache [Recovered/Resolved]

NARRATIVE: CASE EVENT DATE: 20150520
